FAERS Safety Report 5635484-4 (Version None)
Quarter: 2008Q1

REPORT INFORMATION
  Report Type: 
  Country: None (occurrence: None)
  Receive Date: 20080222
  Receipt Date: 20080213
  Transmission Date: 20080703
  Serious: Yes (Other)
  Sender: FDA-Public Use
  Company Number: US-PFIZER INC-2008014236

PATIENT
  Sex: Female

DRUGS (3)
  1. BEXTRA [Suspect]
     Indication: BACK PAIN
  2. BEXTRA [Suspect]
     Indication: MUSCULOSKELETAL PAIN
  3. BEXTRA [Suspect]
     Indication: PAIN IN EXTREMITY

REACTIONS (1)
  - STEVENS-JOHNSON SYNDROME [None]
